FAERS Safety Report 16071453 (Version 1)
Quarter: 2019Q1

REPORT INFORMATION
  Report Type: Spontaneous
  Country: US (occurrence: US)
  Receive Date: 20190314
  Receipt Date: 20190314
  Transmission Date: 20190418
  Serious: Yes (Other)
  Sender: FDA-Public Use
  Company Number: US-PFIZER INC-2019109312

PATIENT
  Age: 62 Year
  Sex: Female
  Weight: 104.33 kg

DRUGS (3)
  1. HUMIRA [Concomitant]
     Active Substance: ADALIMUMAB
     Dosage: UNK
  2. XELJANZ XR [Suspect]
     Active Substance: TOFACITINIB CITRATE
     Indication: ARTHRITIS
     Dosage: 11 MG, 1X/DAY
     Route: 048
  3. METHOTREXATE. [Concomitant]
     Active Substance: METHOTREXATE
     Dosage: UNK

REACTIONS (7)
  - Rash [Unknown]
  - Herpes zoster [Unknown]
  - Hypertension [Unknown]
  - Nasopharyngitis [Unknown]
  - Diverticulitis [Unknown]
  - Blood cholesterol increased [Unknown]
  - Headache [Unknown]

NARRATIVE: CASE EVENT DATE: 201812
